FAERS Safety Report 24740301 (Version 3)
Quarter: 2025Q1

REPORT INFORMATION
  Report Type: Spontaneous
  Country: US (occurrence: US)
  Receive Date: 20241216
  Receipt Date: 20250220
  Transmission Date: 20250409
  Serious: Yes (Death, Hospitalization, Other)
  Sender: BIOGEN
  Company Number: US-BIOGEN-2024BI01293764

PATIENT
  Age: 64 Year
  Sex: Male
  Weight: 101.2 kg

DRUGS (33)
  1. SKYCLARYS [Suspect]
     Active Substance: OMAVELOXOLONE
     Indication: Friedreich^s ataxia
     Route: 050
     Dates: start: 20230830
  2. SKYCLARYS [Suspect]
     Active Substance: OMAVELOXOLONE
     Route: 050
  3. LIPITOR [Concomitant]
     Active Substance: ATORVASTATIN CALCIUM
     Indication: Product used for unknown indication
     Route: 050
     Dates: start: 20221031
  4. BISACODYL [Concomitant]
     Active Substance: BISACODYL
     Indication: Constipation
     Route: 050
  5. BUPROPION [Concomitant]
     Active Substance: BUPROPION
     Indication: Product used for unknown indication
     Route: 050
  6. DILTIAZEM [Concomitant]
     Active Substance: DILTIAZEM
     Indication: Product used for unknown indication
     Route: 050
  7. Docusate sodium (PERICOLACE) [Concomitant]
     Indication: Constipation
     Route: 050
  8. NEURONTIN [Concomitant]
     Active Substance: GABAPENTIN
     Indication: Product used for unknown indication
     Route: 050
  9. GLYCOPYRROLATE [Concomitant]
     Active Substance: GLYCOPYRROLATE
     Indication: Product used for unknown indication
     Route: 050
  10. Hydroxyzine (ATARAX) [Concomitant]
     Indication: Anxiety
     Dosage: 2 TABLETS AT BEDTIME AS NEEDED
     Route: 050
     Dates: start: 20220224
  11. LAMOTRIGINE [Concomitant]
     Active Substance: LAMOTRIGINE
     Indication: Product used for unknown indication
     Dosage: TAKE 2 TABLETS BY MOUTH AT BEDTIME.
     Route: 050
  12. LUBIPROSTONE [Concomitant]
     Active Substance: LUBIPROSTONE
     Indication: Product used for unknown indication
     Dosage: TAKE ONE CAPSULE BY MOUTH TWICE A DAY WITH FOOD OR WATER
     Route: 050
     Dates: start: 20220927
  13. MELATONIN [Concomitant]
     Active Substance: MELATONIN
     Indication: Product used for unknown indication
     Dosage: TAKE 20 MG BY MOUTH AT BEDTIME.
     Route: 050
  14. METFORMIN [Concomitant]
     Active Substance: METFORMIN HYDROCHLORIDE
     Indication: Type 2 diabetes mellitus
     Dosage: TAKE ONE TABLET BY MOUTH TWICE A DAY WITH A MEAL ORAL FOR 90
     Route: 050
  15. XARELTO [Concomitant]
     Active Substance: RIVAROXABAN
     Indication: Atrial fibrillation
     Route: 050
  16. TRIAMCINOLONE [Concomitant]
     Active Substance: TRIAMCINOLONE
     Indication: Product used for unknown indication
     Dosage: 1 APPLICATION TO AFFECTED AREA EXTERNALLY BID MONDAY?- FRIDAY FOR 30 DAYS
     Route: 050
  17. MAGNESIUM OXIDE [Concomitant]
     Active Substance: MAGNESIUM OXIDE
     Indication: Hypomagnesaemia
     Dosage: TAKE 1 TABLET BY MOUTH 3 (THREE) TIMES A DAY FOR 30 DAYS.
     Route: 050
     Dates: start: 20241128, end: 20241228
  18. METOPROLOL TARTRATE [Concomitant]
     Active Substance: METOPROLOL TARTRATE
     Indication: Atrial fibrillation
     Dosage: TAKE 1 TABLET BY MOUTH 2 (TWO) TIMES DAILY FOR 30 DAYS.
     Route: 050
     Dates: start: 20241128, end: 20241228
  19. FERROUS SULFATE [Concomitant]
     Active Substance: FERROUS SULFATE
     Indication: Product used for unknown indication
     Dosage: 325 (65 FE) MG ORAL TABLET TAKE 1 TABLET BY MOUTH DAILY WITH BREAKFAST.
     Route: 050
  20. PROZAC [Concomitant]
     Active Substance: FLUOXETINE HYDROCHLORIDE
     Indication: Product used for unknown indication
     Dosage: 20 MG ORAL CAPSULE TAKE 1 CAPSULE BY MOUTH DAILY.
     Route: 050
  21. FUROSEMIDE [Concomitant]
     Active Substance: FUROSEMIDE
     Indication: Product used for unknown indication
     Dosage: 40 MG ORAL TABLET TAKE 1 TABLET BY MOUTH DAILY.
     Route: 050
  22. GUAIFENESIN [Concomitant]
     Active Substance: GUAIFENESIN
     Indication: Product used for unknown indication
     Dosage: 600 MG ORAL 12 HR EXT REL TAB TAKE 1 TABLET BY MOUTH 2 (TWO) TIMES DAILY.
     Route: 050
  23. TAMSULOSIN [Concomitant]
     Active Substance: TAMSULOSIN
     Indication: Product used for unknown indication
     Dosage: 0.4 MG ORAL 24 HR CAPSULE TAKE 1 CAPSULE BY MOUTH DAILY FOR 30 DAYS.
     Route: 050
  24. Glucagon (GLUCAGEN) [Concomitant]
     Indication: Product used for unknown indication
     Route: 050
  25. ROBINUL [Concomitant]
     Active Substance: GLYCOPYRROLATE
     Indication: Product used for unknown indication
     Route: 050
     Dates: start: 20241227, end: 20241227
  26. ROBINUL [Concomitant]
     Active Substance: GLYCOPYRROLATE
     Route: 050
     Dates: start: 20241228, end: 20241228
  27. ATIVAN [Concomitant]
     Active Substance: LORAZEPAM
     Indication: Agitation
     Route: 050
     Dates: start: 20241227, end: 20241227
  28. ATIVAN [Concomitant]
     Active Substance: LORAZEPAM
     Route: 050
     Dates: start: 20241228, end: 20241228
  29. ROXANOL [Concomitant]
     Active Substance: MORPHINE SULFATE
     Indication: Pain
     Route: 050
     Dates: start: 20241227, end: 20241227
  30. ROXANOL [Concomitant]
     Active Substance: MORPHINE SULFATE
     Route: 050
     Dates: start: 20241228, end: 20241228
  31. SCOPOLAMINE [Concomitant]
     Active Substance: SCOPOLAMINE
     Indication: Product used for unknown indication
     Route: 050
     Dates: start: 20241227, end: 20241227
  32. White Petrolatum-Mineral Oil [Concomitant]
     Indication: Product used for unknown indication
     Dosage: 56.8-42.5%
     Route: 050
     Dates: start: 20241227, end: 20241227
  33. SARS-COV-2 VACCINE [Concomitant]
     Indication: COVID-19 prophylaxis
     Route: 050
     Dates: start: 20210713

REACTIONS (15)
  - Hepatic failure [Fatal]
  - Septic shock [Recovered/Resolved]
  - Hepatic cirrhosis [Unknown]
  - Toxic encephalopathy [Unknown]
  - Lactic acidosis [Recovered/Resolved]
  - Pericardial effusion [Unknown]
  - Cardiac tamponade [Unknown]
  - Pneumonia [Unknown]
  - Hypotension [Unknown]
  - Confusional state [Unknown]
  - Procedural failure [Unknown]
  - Decubitus ulcer [Unknown]
  - Communication disorder [Unknown]
  - Insomnia [Unknown]
  - Decreased appetite [Unknown]

NARRATIVE: CASE EVENT DATE: 20241101
